FAERS Safety Report 7715633-4 (Version None)
Quarter: 2011Q3

REPORT INFORMATION
  Report Type: 
  Country: None (occurrence: None)
  Receive Date: 20110829
  Receipt Date: 20110819
  Transmission Date: 20111222
  Serious: Yes (Hospitalization)
  Sender: FDA-Public Use
  Company Number: US-ROCHE-787743

PATIENT
  Sex: Female

DRUGS (7)
  1. RIBAVIRIN [Suspect]
     Indication: HEPATITIS C
     Dosage: LAST DOSE PRIOR TO SAE RECEIVED ON
     Route: 048
     Dates: start: 20101014, end: 20110406
  2. LEVAQUIN [Concomitant]
  3. BLINDED BMS-790052 (HCV NS5A INHIBITOR) [Suspect]
     Indication: HEPATITIS C
     Dosage: LAST DOSE RECEIVED ON : 30 MARCH 2011,  1 DOSAGE FORM 1 DAY
     Route: 048
     Dates: start: 20101014, end: 20110330
  4. ZANTAC [Concomitant]
  5. PEGINTERFERON ALFA-2A [Suspect]
     Indication: HEPATITIS C
     Dosage: LAST DOSE RECEIVED ON: 01 APRIL 2011
     Route: 058
     Dates: start: 20101014, end: 20110406
  6. RIBAVIRIN [Suspect]
     Route: 048
  7. FENTANYL [Concomitant]

REACTIONS (3)
  - DEEP VEIN THROMBOSIS [None]
  - CEREBROVASCULAR ACCIDENT [None]
  - PNEUMONIA [None]
